FAERS Safety Report 16997070 (Version 1)
Quarter: 2019Q4

REPORT INFORMATION
  Report Type: Spontaneous
  Country: US (occurrence: US)
  Receive Date: 20190923
  Receipt Date: 20190923
  Transmission Date: 20200122
  Serious: Yes (Hospitalization)
  Sender: FDA-Public Use
  Company Number: None

PATIENT
  Age: 53 Year
  Sex: Male
  Weight: 163 kg

DRUGS (2)
  1. LIRAGLUTIDE [Suspect]
     Active Substance: LIRAGLUTIDE
     Indication: HEPATIC CIRRHOSIS
  2. LIRAGLUTIDE [Suspect]
     Active Substance: LIRAGLUTIDE
     Indication: DIABETES MELLITUS
     Route: 058
     Dates: start: 20181212, end: 20190329

REACTIONS (3)
  - Gallbladder disorder [None]
  - Lactic acidosis [None]
  - Blood glucose increased [None]

NARRATIVE: CASE EVENT DATE: 20190329
